FAERS Safety Report 4325058-X (Version None)
Quarter: 2004Q1

REPORT INFORMATION
  Report Type: 
  Country: None (occurrence: None)
  Receive Date: 20040323
  Receipt Date: 20040308
  Transmission Date: 20041129
  Serious: Yes (Hospitalization)
  Sender: FDA-Public Use
  Company Number: US-JNJFOC-20040301930

PATIENT
  Age: 74 Year
  Sex: Female

DRUGS (7)
  1. DURAGESIC [Suspect]
     Indication: PAIN
     Dosage: 100 UG/HR, 1 IN 72 HOUR, TRANDERMAL
     Route: 062
     Dates: start: 20010101
  2. PREMARIN [Concomitant]
  3. SYNTHROID [Concomitant]
  4. ALLOPURINOL [Concomitant]
  5. CELEBREX [Concomitant]
  6. AMOXICILLIN [Concomitant]
  7. OXYCONTIN [Concomitant]

REACTIONS (4)
  - INFLUENZA [None]
  - PHARMACEUTICAL PRODUCT COMPLAINT [None]
  - PNEUMONIA [None]
  - STREPTOCOCCAL INFECTION [None]
